FAERS Safety Report 5264629-3 (Version None)
Quarter: 2007Q1

REPORT INFORMATION
  Report Type: 
  Country: None (occurrence: None)
  Receive Date: 20070314
  Receipt Date: 20070308
  Transmission Date: 20070707
  Serious: Yes (Other)
  Sender: FDA-Public Use
  Company Number: CA-BRISTOL-MYERS SQUIBB COMPANY-13708359

PATIENT

DRUGS (8)
  1. DOXORUBICIN HCL [Suspect]
     Indication: HODGKIN'S DISEASE
     Route: 042
  2. VINCRISTINE [Suspect]
     Indication: HODGKIN'S DISEASE
     Route: 042
  3. BLEOMYCIN [Suspect]
     Indication: HODGKIN'S DISEASE
     Route: 042
  4. MECHLORETHAMINE [Suspect]
     Indication: HODGKIN'S DISEASE
     Route: 042
  5. PROCARBAZINE [Suspect]
     Indication: HODGKIN'S DISEASE
     Route: 048
  6. PREDNISONE [Suspect]
     Indication: HODGKIN'S DISEASE
     Route: 048
  7. VINBLASTINE SULFATE [Suspect]
     Indication: HODGKIN'S DISEASE
     Route: 042
  8. RADIOTHERAPY [Suspect]
     Indication: HODGKIN'S DISEASE

REACTIONS (6)
  - CONVULSION [None]
  - MALIGNANT NEOPLASM PROGRESSION [None]
  - OSTEONECROSIS [None]
  - PULMONARY TOXICITY [None]
  - THYROID DISORDER [None]
  - VENOUS THROMBOSIS [None]
